FAERS Safety Report 18381921 (Version 1)
Quarter: 2020Q4

REPORT INFORMATION
  Report Type: Spontaneous
  Country: US (occurrence: US)
  Receive Date: 20201014
  Receipt Date: 20201014
  Transmission Date: 20210114
  Serious: Yes (Other)
  Sender: FDA-Public Use
  Company Number: US-BAYER-2020-217912

PATIENT
  Age: 85 Year
  Sex: Male

DRUGS (1)
  1. EOVIST [Suspect]
     Active Substance: GADOXETATE DISODIUM
     Indication: COMPUTERISED TOMOGRAM THORAX

REACTIONS (1)
  - Injection site extravasation [None]
